FAERS Safety Report 4585088-X (Version None)
Quarter: 2005Q1

REPORT INFORMATION
  Report Type: 
  Country: None (occurrence: None)
  Receive Date: 20050217
  Receipt Date: 20041228
  Transmission Date: 20050727
  Serious: No
  Sender: FDA-Public Use
  Company Number: US-GLAXOSMITHKLINE-A0538581A

PATIENT

DRUGS (1)
  1. WELLBUTRIN XL [Suspect]
     Indication: ILL-DEFINED DISORDER
     Dosage: 1TAB PER DAY
     Route: 048
     Dates: start: 20041217

REACTIONS (2)
  - CRYING [None]
  - DIZZINESS [None]
